FAERS Safety Report 5480049-0 (Version None)
Quarter: 2007Q4

REPORT INFORMATION
  Report Type: 
  Country: None (occurrence: None)
  Receive Date: 20071008
  Receipt Date: 20070927
  Transmission Date: 20080405
  Serious: Yes (Other)
  Sender: FDA-Public Use
  Company Number: GB-PFIZER INC-2007079428

PATIENT
  Age: 50 Year
  Sex: Male
  Weight: 84 kg

DRUGS (1)
  1. VARENICLINE TABLETS [Suspect]
     Indication: SMOKING CESSATION THERAPY
     Dosage: DAILY DOSE:1GRAM
     Route: 048
     Dates: start: 20070607, end: 20070618

REACTIONS (5)
  - DEPRESSED MOOD [None]
  - HEADACHE [None]
  - MALAISE [None]
  - NAUSEA [None]
  - PAIN [None]
